FAERS Safety Report 24436709 (Version 1)
Quarter: 2024Q4

REPORT INFORMATION
  Report Type: Spontaneous
  Country: ES (occurrence: ES)
  Receive Date: 20241015
  Receipt Date: 20241015
  Transmission Date: 20250115
  Serious: Yes (Life-Threatening, Other)
  Sender: VIIV
  Company Number: None

PATIENT

DRUGS (4)
  1. VOCABRIA [Suspect]
     Active Substance: CABOTEGRAVIR SODIUM
     Indication: HIV infection
     Dosage: 600 MG (TOTAL)
     Route: 030
     Dates: start: 20241001, end: 20241001
  2. VOCABRIA [Suspect]
     Active Substance: CABOTEGRAVIR SODIUM
  3. VOCABRIA [Suspect]
     Active Substance: CABOTEGRAVIR SODIUM
  4. RILPIVIRINE [Suspect]
     Active Substance: RILPIVIRINE
     Indication: HIV test positive
     Dosage: 900 MG (TOTAL)
     Route: 030
     Dates: start: 20241001, end: 20241001

REACTIONS (4)
  - Type I hypersensitivity [Recovered/Resolved]
  - Dyspnoea [Recovered/Resolved]
  - Palatal oedema [Recovered/Resolved]
  - Rash pruritic [Recovered/Resolved]

NARRATIVE: CASE EVENT DATE: 20241001
